FAERS Safety Report 9021267 (Version 1)
Quarter: 2013Q1

REPORT INFORMATION
  Report Type: Spontaneous
  Country: US (occurrence: US)
  Receive Date: 20130119
  Receipt Date: 20130119
  Transmission Date: 20140127
  Serious: No
  Sender: FDA-Public Use
  Company Number: US-ALLERGAN-1203185US

PATIENT
  Age: 46 None
  Sex: Female
  Weight: 137.6 kg

DRUGS (1)
  1. BOTOX? [Suspect]
     Indication: HEADACHE
     Dosage: 155 UNITS, SINGLE
     Route: 030
     Dates: start: 20111111, end: 20111111

REACTIONS (1)
  - Muscle twitching [Not Recovered/Not Resolved]
